FAERS Safety Report 5362908-2 (Version None)
Quarter: 2007Q2

REPORT INFORMATION
  Report Type: 
  Country: None (occurrence: None)
  Receive Date: 20070614
  Receipt Date: 20070607
  Transmission Date: 20071010
  Serious: Yes (Hospitalization)
  Sender: FDA-Public Use
  Company Number: CHNY2007AU01922

PATIENT
  Age: 69 Year
  Sex: Male

DRUGS (1)
  1. ALPHAPHARM QUITX (NCH)(NICOTINE) TRANS-THERAPEUTIC-SYSTEM [Suspect]
     Dosage: UNK, UNK, TRANSDERMAL
     Route: 062

REACTIONS (6)
  - CHEST PAIN [None]
  - CORONARY ARTERY OCCLUSION [None]
  - DYSPNOEA [None]
  - LOWER RESPIRATORY TRACT INFECTION [None]
  - MYOCARDIAL INFARCTION [None]
  - TREATMENT NONCOMPLIANCE [None]
